FAERS Safety Report 10038632 (Version 1)
Quarter: 2014Q1

REPORT INFORMATION
  Report Type: Report from Study
  Country: US (occurrence: US)
  Receive Date: 20140326
  Receipt Date: 20140326
  Transmission Date: 20141002
  Serious: Yes (Other)
  Sender: FDA-Public Use
  Company Number: US-ABBVIE-14P-163-1213538-00

PATIENT
  Age: 48 Year
  Sex: Male
  Weight: 99.88 kg

DRUGS (8)
  1. HUMIRA [Suspect]
     Indication: CROHN^S DISEASE
  2. HUMIRA [Suspect]
  3. HUMIRA [Suspect]
  4. LOTRIL [Concomitant]
     Indication: HYPERTENSION
  5. AZATHIOPRINE [Concomitant]
     Indication: CROHN^S DISEASE
  6. IMODIUM [Concomitant]
     Indication: CROHN^S DISEASE
  7. MULTIVITAMIN [Concomitant]
     Indication: PRODUCT USED FOR UNKNOWN INDICATION
  8. SUDAFED [Concomitant]
     Indication: HYPERSENSITIVITY

REACTIONS (5)
  - Abdominal adhesions [Recovered/Resolved]
  - Intestinal stenosis [Recovered/Resolved]
  - Intestinal obstruction [Recovered/Resolved]
  - Drug effect incomplete [Not Recovered/Not Resolved]
  - Discomfort [Not Recovered/Not Resolved]
